FAERS Safety Report 7636296-2 (Version None)
Quarter: 2011Q3

REPORT INFORMATION
  Report Type: 
  Country: None (occurrence: None)
  Receive Date: 20110726
  Receipt Date: 20110708
  Transmission Date: 20111222
  Serious: Yes (Death, Hospitalization)
  Sender: FDA-Public Use
  Company Number: US-GLAXOSMITHKLINE-A0839068A

PATIENT
  Age: 69 Year
  Sex: Male

DRUGS (1)
  1. AVANDIA [Suspect]
     Indication: DIABETES MELLITUS
     Dosage: 8MG PER DAY
     Route: 065
     Dates: start: 20000101, end: 20050530

REACTIONS (5)
  - EMBOLISM [None]
  - MYOCARDIAL INFARCTION [None]
  - MESENTERIC OCCLUSION [None]
  - PERIPHERAL EMBOLISM [None]
  - CARDIO-RESPIRATORY ARREST [None]
